FAERS Safety Report 8298387-5 (Version None)
Quarter: 2012Q2

REPORT INFORMATION
  Report Type: 
  Country: None (occurrence: None)
  Receive Date: 20120419
  Receipt Date: 20120411
  Transmission Date: 20120825
  Serious: Yes (Hospitalization)
  Sender: FDA-Public Use
  Company Number: US-ROCHE-1054838

PATIENT
  Sex: Male

DRUGS (2)
  1. INSULIN [Concomitant]
  2. ZELBORAF [Suspect]
     Indication: PRODUCT USED FOR UNKNOWN INDICATION
     Route: 065

REACTIONS (9)
  - PYREXIA [None]
  - BLOOD SODIUM INCREASED [None]
  - PAIN [None]
  - VOMITING [None]
  - NASOPHARYNGITIS [None]
  - SKIN ULCER [None]
  - FATIGUE [None]
  - HEADACHE [None]
  - HEPATIC ENZYME INCREASED [None]
